FAERS Safety Report 5615834-5 (Version None)
Quarter: 2008Q1

REPORT INFORMATION
  Report Type: 
  Country: None (occurrence: None)
  Receive Date: 20080206
  Receipt Date: 20080124
  Transmission Date: 20080703
  Serious: Yes (Other)
  Sender: FDA-Public Use
  Company Number: US-ELI_LILLY_AND_COMPANY-US200801005208

PATIENT
  Sex: Female

DRUGS (2)
  1. CYMBALTA [Suspect]
     Dosage: 90 MG, DAILY (1/D)
     Dates: start: 20070101
  2. ZOLOFT [Concomitant]

REACTIONS (3)
  - BLOOD PRESSURE INCREASED [None]
  - BLOODY DISCHARGE [None]
  - EYE OPERATION [None]
